FAERS Safety Report 15035710 (Version 1)
Quarter: 2018Q2

REPORT INFORMATION
  Report Type: Spontaneous
  Country: US (occurrence: US)
  Receive Date: 20180620
  Receipt Date: 20180620
  Transmission Date: 20180711
  Serious: Yes (Other)
  Sender: FDA-Public Use
  Company Number: US-MYLANLABS-2018M1042001

PATIENT
  Age: 54 Year
  Sex: Female

DRUGS (2)
  1. CELLCEPT [Suspect]
     Active Substance: MYCOPHENOLATE MOFETIL\MYCOPHENOLATE MOFETIL HYDROCHLORIDE
     Indication: ENCEPHALITIS AUTOIMMUNE
     Dosage: 1000 MG/1500 MG DAILY
     Route: 065
  2. PREDNISONE. [Suspect]
     Active Substance: PREDNISONE
     Indication: ENCEPHALITIS AUTOIMMUNE
     Dosage: 50 MG, QD
     Route: 065

REACTIONS (4)
  - Pancytopenia [Recovering/Resolving]
  - Haematochezia [Recovering/Resolving]
  - Cytomegalovirus colitis [Recovering/Resolving]
  - Cytomegalovirus viraemia [Recovering/Resolving]
